FAERS Safety Report 13116845 (Version 11)
Quarter: 2018Q2

REPORT INFORMATION
  Report Type: Spontaneous
  Country: US (occurrence: US)
  Receive Date: 20170116
  Receipt Date: 20180523
  Transmission Date: 20180711
  Serious: Yes (Other)
  Sender: FDA-Public Use
  Company Number: US-PFIZER INC-2017014020

PATIENT
  Age: 78 Year
  Sex: Male

DRUGS (2)
  1. XELJANZ XR [Suspect]
     Active Substance: TOFACITINIB CITRATE
     Dosage: 11 MG, DAILY
     Dates: start: 201609, end: 20180418
  2. XELJANZ XR [Suspect]
     Active Substance: TOFACITINIB CITRATE
     Dosage: 11 MG, EVERY DAY (AS DIRECTED)
     Dates: start: 20160907

REACTIONS (9)
  - Asthenia [Not Recovered/Not Resolved]
  - Malaise [Unknown]
  - Cough [Unknown]
  - Haematoma [Unknown]
  - Pain [Unknown]
  - Poor peripheral circulation [Unknown]
  - Herpes zoster [Unknown]
  - Dyspnoea [Unknown]
  - Infection [Unknown]
